FAERS Safety Report 4468160-4 (Version None)
Quarter: 2004Q4

REPORT INFORMATION
  Report Type: 
  Country: None (occurrence: None)
  Receive Date: 20041004
  Receipt Date: 20040920
  Transmission Date: 20050328
  Serious: Yes (Hospitalization)
  Sender: FDA-Public Use
  Company Number: 2004071094

PATIENT
  Age: 77 Year
  Sex: Male

DRUGS (18)
  1. ATARAX [Suspect]
     Indication: ILL-DEFINED DISORDER
     Dosage: ORAL
     Route: 048
     Dates: start: 20040811
  2. AMLODIPINE [Suspect]
     Indication: ILL-DEFINED DISORDER
     Dosage: ORAL
     Route: 048
     Dates: start: 20040515
  3. OXACILLIN [Suspect]
     Indication: ILL-DEFINED DISORDER
     Dosage: 12000 MG, INTRAVENOUS
     Route: 042
     Dates: start: 20040729, end: 20040823
  4. RIFAMPICIN [Suspect]
     Indication: ILL-DEFINED DISORDER
     Dosage: INTRAVENOUS
     Route: 042
     Dates: start: 20040728, end: 20040823
  5. SOTALOL HCL [Suspect]
     Indication: ILL-DEFINED DISORDER
     Dosage: 240 MG, ORAL
     Route: 048
     Dates: start: 19960615
  6. VANCOMYCIN HCL [Suspect]
     Indication: ILL-DEFINED DISORDER
     Dosage: 2000 MG, INTRAVENOUS
     Route: 042
     Dates: start: 20040728, end: 20040729
  7. POTASSIUM CHLORIDE [Concomitant]
  8. ATORVASTATIN CALCIUM [Concomitant]
  9. ETHYL LOFLAZEPATE (ETHYL LOFLAZEPATE) [Concomitant]
  10. PERINDOPRIL (PERINDOPRIL) [Concomitant]
  11. FUROSEMIDE [Concomitant]
  12. ZOLPIDEM TARTRATE [Concomitant]
  13. ZOPICLONE (ZOPICLONE) [Concomitant]
  14. FLUINDIONE (FLUINDIONE) [Concomitant]
  15. DIOSMIN (DIOSMIN) [Concomitant]
  16. TRIMEBUTINE (TRIMEBUTINE) [Concomitant]
  17. NULYTELY (MACROBOL, POTASSIUM CHLORIDE, SODIUM BICARBONATE, SODIUM CHL [Concomitant]
  18. ISPAGHULA (ISPAGHULA) [Concomitant]

REACTIONS (6)
  - CATHETER RELATED INFECTION [None]
  - HAEMANGIOMA [None]
  - LIP DISORDER [None]
  - PURPURA [None]
  - RASH MORBILLIFORM [None]
  - TOXIC SKIN ERUPTION [None]
